FAERS Safety Report 7462257-2 (Version None)
Quarter: 2011Q2

REPORT INFORMATION
  Report Type: 
  Country: None (occurrence: None)
  Receive Date: 20110506
  Receipt Date: 20101109
  Transmission Date: 20111010
  Serious: Yes (Hospitalization, Other)
  Sender: FDA-Public Use
  Company Number: US-BAYER-201025538NA

PATIENT
  Age: 27 Year
  Sex: Female
  Weight: 117.91 kg

DRUGS (3)
  1. YASMIN [Suspect]
     Dosage: UNK
     Dates: start: 20090101
  2. YASMIN [Suspect]
     Indication: ORAL CONTRACEPTION
     Route: 048
     Dates: start: 20010101
  3. YAZ [Suspect]
     Indication: ORAL CONTRACEPTION
     Dosage: START DATE 2005 (MED. RECORDS) OR 2006 (LEGAL DOC.)
     Route: 048
     Dates: start: 20060101, end: 20090101

REACTIONS (8)
  - VOMITING [None]
  - CHOLELITHIASIS [None]
  - ABDOMINAL PAIN UPPER [None]
  - BILE DUCT STONE [None]
  - NAUSEA [None]
  - VAGINAL HAEMORRHAGE [None]
  - GALLBLADDER INJURY [None]
  - CHOLECYSTITIS ACUTE [None]
